FAERS Safety Report 7304089-1 (Version None)
Quarter: 2011Q1

REPORT INFORMATION
  Report Type: 
  Country: None (occurrence: None)
  Receive Date: 20110221
  Receipt Date: 20110210
  Transmission Date: 20110831
  Serious: Yes (Other)
  Sender: FDA-Public Use
  Company Number: PHHY2011US10026

PATIENT
  Sex: Female

DRUGS (1)
  1. EXJADE [Suspect]
     Indication: SICKLE CELL ANAEMIA
     Dosage: 1500 MG, QD
     Route: 048

REACTIONS (4)
  - CEREBRAL HAEMORRHAGE [None]
  - THROMBOSIS [None]
  - SICKLE CELL ANAEMIA WITH CRISIS [None]
  - PAIN [None]
